FAERS Safety Report 20053242 (Version 1)
Quarter: 2021Q4

REPORT INFORMATION
  Report Type: Spontaneous
  Country: US (occurrence: None)
  Receive Date: 20211109
  Receipt Date: 20211109
  Transmission Date: 20220303
  Serious: No
  Sender: FDA-Public Use
  Company Number: None

PATIENT
  Sex: Male

DRUGS (1)
  1. CEFEPIME HYDROCHLORIDE [Suspect]
     Active Substance: CEFEPIME HYDROCHLORIDE
     Indication: Lung abscess
     Dosage: FREQUENCY : EVERY 8 HOURS;?OTHER ROUTE : IV;?
     Route: 042
     Dates: start: 20211102

REACTIONS (3)
  - Rash erythematous [None]
  - Rash pruritic [None]
  - Therapy interrupted [None]
